FAERS Safety Report 7694425-9 (Version None)
Quarter: 2011Q3

REPORT INFORMATION
  Report Type: 
  Country: None (occurrence: None)
  Receive Date: 20110819
  Receipt Date: 20110818
  Transmission Date: 20111222
  Serious: Yes (Other)
  Sender: FDA-Public Use
  Company Number: AU-PFIZER INC-2011130442

PATIENT
  Age: 41 Year
  Sex: Female
  Weight: 80 kg

DRUGS (2)
  1. LITHIUM CARBONATE [Concomitant]
     Indication: BIPOLAR DISORDER
     Dosage: TWO SLOW RELEASE TABLETS, DAILY
     Route: 048
  2. ZIPRASIDONE HYDROCHLORIDE [Suspect]
     Indication: BIPOLAR I DISORDER
     Dosage: 20 MG, DAILY IN THE AFTERNOON AROUND 4PM WITH FOOD
     Route: 048
     Dates: start: 20110409, end: 20110501

REACTIONS (6)
  - HEADACHE [None]
  - MENTAL IMPAIRMENT [None]
  - VISION BLURRED [None]
  - FEELING ABNORMAL [None]
  - SEDATION [None]
  - INFLUENZA LIKE ILLNESS [None]
